FAERS Safety Report 4648199-6 (Version None)
Quarter: 2005Q2

REPORT INFORMATION
  Report Type: 
  Country: None (occurrence: None)
  Receive Date: 20050331
  Receipt Date: 20050111
  Transmission Date: 20051028
  Serious: No
  Sender: FDA-Public Use
  Company Number: 05P-163-0286061-00

PATIENT
  Age: 67 Year
  Sex: Female
  Weight: 74.8435 kg

DRUGS (9)
  1. HUMIRA [Suspect]
     Indication: RHEUMATOID ARTHRITIS
     Dosage: 40 MG, 1 IN 2 WK, SUBCUTANEOUS
     Route: 058
     Dates: start: 20040701
  2. PREDNISONE TAB [Concomitant]
  3. CELEXOCIB [Concomitant]
  4. ALPRAZOLAM [Concomitant]
  5. VICODIN [Concomitant]
  6. ZOCOR [Concomitant]
  7. RISEDRONATE SODIUM [Concomitant]
  8. AMTRIPTYLINE HYDROCHLORIDE [Concomitant]
  9. ESOMEPRAZOLE [Concomitant]

REACTIONS (3)
  - COUGH [None]
  - RASH ERYTHEMATOUS [None]
  - RASH PRURITIC [None]
